FAERS Safety Report 4640698-6 (Version None)
Quarter: 2005Q2

REPORT INFORMATION
  Report Type: 
  Country: None (occurrence: None)
  Receive Date: 20050419
  Receipt Date: 20050407
  Transmission Date: 20051028
  Serious: Yes (Death)
  Sender: FDA-Public Use
  Company Number: USA-2005-0019684

PATIENT
  Age: 4 Year
  Sex: Female

DRUGS (1)
  1. CEFDITOREN PIVOXIL (SIMILAR TO NDA 21-222) (CEFDITOREN PIVOXIL) [Suspect]
     Dates: start: 20030201

REACTIONS (1)
  - TOXIC EPIDERMAL NECROLYSIS [None]
